FAERS Safety Report 19009071 (Version 1)
Quarter: 2021Q1

REPORT INFORMATION
  Report Type: Spontaneous
  Country: US (occurrence: US)
  Receive Date: 20210315
  Receipt Date: 20210315
  Transmission Date: 20210420
  Serious: Yes (Life-Threatening)
  Sender: FDA-Public Use
  Company Number: NVSC2021US058407

PATIENT
  Sex: Male

DRUGS (1)
  1. RECLAST [Suspect]
     Active Substance: ZOLEDRONIC ACID
     Indication: PRODUCT USED FOR UNKNOWN INDICATION
     Dosage: UNK
     Route: 042
     Dates: start: 20210126

REACTIONS (11)
  - Musculoskeletal stiffness [Unknown]
  - Arthralgia [Unknown]
  - Feeling abnormal [Unknown]
  - Confusional state [Unknown]
  - Muscle spasms [Unknown]
  - Abdominal rigidity [Unknown]
  - Pain [Unknown]
  - Myalgia [Unknown]
  - Back pain [Unknown]
  - Headache [Unknown]
  - Palpitations [Unknown]
